FAERS Safety Report 5301473-2 (Version None)
Quarter: 2007Q2

REPORT INFORMATION
  Report Type: 
  Country: None (occurrence: None)
  Receive Date: 20070418
  Receipt Date: 20070409
  Transmission Date: 20071010
  Serious: Yes (Other)
  Sender: FDA-Public Use
  Company Number: US-GENENTECH-221851

PATIENT
  Sex: Female
  Weight: 17.6 kg

DRUGS (1)
  1. SOMATROPIN [Suspect]
     Indication: TURNER'S SYNDROME
     Dosage: 0.398 MG/K/W, UNK
     Dates: start: 19990805, end: 20030901

REACTIONS (1)
  - HEPATIC NEOPLASM MALIGNANT [None]
